FAERS Safety Report 7452255-7 (Version None)
Quarter: 2011Q2

REPORT INFORMATION
  Report Type: 
  Country: None (occurrence: None)
  Receive Date: 20110502
  Receipt Date: 20110425
  Transmission Date: 20111010
  Serious: Yes (Other)
  Sender: FDA-Public Use
  Company Number: US-NAPPMUNDI-USA-2010-0049199

PATIENT
  Sex: Male

DRUGS (2)
  1. OXYCONTIN (NDA 22-272) [Suspect]
     Indication: PAIN
     Dosage: 20 MG, UNK
     Route: 048
     Dates: start: 20100901
  2. PERCOCET [Concomitant]
     Indication: PAIN
     Dosage: UNK, Q8H
     Route: 048

REACTIONS (8)
  - DRUG WITHDRAWAL SYNDROME [None]
  - HYPERTENSION [None]
  - INADEQUATE ANALGESIA [None]
  - BLOOD PRESSURE INCREASED [None]
  - COLD SWEAT [None]
  - NAUSEA [None]
  - DRUG DOSE OMISSION [None]
  - CHEST PAIN [None]
